FAERS Safety Report 12809444 (Version 2)
Quarter: 2016Q4

REPORT INFORMATION
  Report Type: Spontaneous
  Country: GR (occurrence: GR)
  Receive Date: 20161005
  Receipt Date: 20161019
  Transmission Date: 20170207
  Serious: Yes (Other)
  Sender: FDA-Public Use
  Company Number: GR-ROCHE-1837975

PATIENT
  Age: 78 Year
  Sex: Male

DRUGS (8)
  1. RITUXIMAB [Suspect]
     Active Substance: RITUXIMAB
     Indication: SPLENOMEGALY
     Route: 042
     Dates: start: 201602
  2. CHLORAMBUCIL [Suspect]
     Active Substance: CHLORAMBUCIL
     Indication: SPLENOMEGALY
     Route: 065
  3. CYCLOPHOSPHAMIDE. [Concomitant]
     Active Substance: CYCLOPHOSPHAMIDE
     Indication: SPLENOMEGALY
  4. DEXAMETHASONE. [Concomitant]
     Active Substance: DEXAMETHASONE
     Indication: SPLENOMEGALY
  5. CYCLOPHOSPHAMIDE. [Concomitant]
     Active Substance: CYCLOPHOSPHAMIDE
     Indication: WHITE BLOOD CELL COUNT INCREASED
  6. DEXAMETHASONE. [Concomitant]
     Active Substance: DEXAMETHASONE
     Indication: WHITE BLOOD CELL COUNT INCREASED
  7. CHLORAMBUCIL [Suspect]
     Active Substance: CHLORAMBUCIL
     Indication: WHITE BLOOD CELL COUNT INCREASED
  8. RITUXIMAB [Suspect]
     Active Substance: RITUXIMAB
     Indication: WHITE BLOOD CELL COUNT INCREASED

REACTIONS (2)
  - Hypersensitivity [Recovered/Resolved]
  - Autoimmune haemolytic anaemia [Unknown]
